FAERS Safety Report 12526188 (Version 2)
Quarter: 2016Q4

REPORT INFORMATION
  Report Type: Spontaneous
  Country: US (occurrence: US)
  Receive Date: 20160705
  Receipt Date: 20161012
  Transmission Date: 20170207
  Serious: No
  Sender: FDA-Public Use
  Company Number: US-PFIZER INC-2016318653

PATIENT
  Age: 83 Year
  Sex: Female

DRUGS (2)
  1. IBRANCE [Suspect]
     Active Substance: PALBOCICLIB
     Indication: NEOPLASM MALIGNANT
     Dosage: 125 MG, UNK
     Dates: start: 20160615, end: 20161006
  2. LETROZOLE. [Suspect]
     Active Substance: LETROZOLE
     Dosage: UNK
     Dates: start: 20160615

REACTIONS (5)
  - Insomnia [Unknown]
  - Muscle spasms [Recovered/Resolved]
  - Neoplasm progression [Unknown]
  - Fatigue [Unknown]
  - Nausea [Unknown]
